APPROVED DRUG PRODUCT: DEFITELIO
Active Ingredient: DEFIBROTIDE SODIUM
Strength: 200MG/2.5ML (80MG/ML)
Dosage Form/Route: SOLUTION;INTRAVENOUS
Application: N208114 | Product #001
Applicant: JAZZ PHARMACEUTICALS INC
Approved: Mar 30, 2016 | RLD: Yes | RS: Yes | Type: RX

PATENTS:
Patent 11236328 | Expires: Jun 22, 2032
Patent 11085043 | Expires: Jun 22, 2032
Patent 11746348 | Expires: Jun 22, 2032